FAERS Safety Report 24091129 (Version 1)
Quarter: 2024Q3

REPORT INFORMATION
  Report Type: Spontaneous
  Country: US (occurrence: None)
  Receive Date: 20240713
  Receipt Date: 20240713
  Transmission Date: 20241016
  Serious: Yes (Other)
  Sender: Public
  Company Number: None

PATIENT
  Age: 24 Year
  Sex: Female
  Weight: 71.1 kg

DRUGS (2)
  1. PLENVU [Suspect]
     Active Substance: ASCORBIC ACID\POLYETHYLENE GLYCOL 3350\POTASSIUM CHLORIDE\SODIUM ASCORBATE\SODIUM CHLORIDE\SODIUM SU
     Indication: Bowel preparation
     Dosage: OTHER FREQUENCY : ONCE NIGHT BEFORE;?
     Route: 048
     Dates: start: 20240711, end: 20240711
  2. NUVARING [Concomitant]
     Active Substance: ETHINYL ESTRADIOL\ETONOGESTREL

REACTIONS (4)
  - Urticaria [None]
  - Headache [None]
  - Rhinorrhoea [None]
  - Chest discomfort [None]

NARRATIVE: CASE EVENT DATE: 20240711
